FAERS Safety Report 15112184 (Version 1)
Quarter: 2018Q3

REPORT INFORMATION
  Report Type: Spontaneous
  Country: US (occurrence: US)
  Receive Date: 20180705
  Receipt Date: 20180705
  Transmission Date: 20181010
  Serious: Yes (Other)
  Sender: FDA-Public Use
  Company Number: US-FRESENIUS KABI-FK201807544

PATIENT
  Age: 29 Year
  Sex: Male

DRUGS (8)
  1. ENBREL [Suspect]
     Active Substance: ETANERCEPT
     Indication: HYPOGAMMAGLOBULINAEMIA
     Route: 065
  2. HYDROXYCHLOROQUINE [Suspect]
     Active Substance: HYDROXYCHLOROQUINE
     Indication: HYPOGAMMAGLOBULINAEMIA
     Route: 065
  3. REMICADE [Suspect]
     Active Substance: INFLIXIMAB
     Indication: HYPOGAMMAGLOBULINAEMIA
     Route: 065
  4. METHOTREXATE (MANUFACTURER UNKNOWN) [Suspect]
     Active Substance: METHOTREXATE
     Indication: HYPOGAMMAGLOBULINAEMIA
     Route: 065
  5. CYTOXAN [Suspect]
     Active Substance: CYCLOPHOSPHAMIDE
     Indication: HYPOGAMMAGLOBULINAEMIA
     Route: 065
  6. TACROLIMUS. [Suspect]
     Active Substance: TACROLIMUS
     Indication: HYPOGAMMAGLOBULINAEMIA
     Route: 065
  7. DAPSONE. [Suspect]
     Active Substance: DAPSONE
     Indication: HYPOGAMMAGLOBULINAEMIA
     Route: 065
  8. CYCLOPHOSPHAMIDE. [Suspect]
     Active Substance: CYCLOPHOSPHAMIDE
     Indication: HYPOGAMMAGLOBULINAEMIA
     Route: 065

REACTIONS (2)
  - Osteomyelitis chronic [Recovered/Resolved]
  - Helicobacter infection [Recovered/Resolved]
